FAERS Safety Report 21898291 (Version 3)
Quarter: 2023Q2

REPORT INFORMATION
  Report Type: Spontaneous
  Country: US (occurrence: US)
  Receive Date: 20230123
  Receipt Date: 20230407
  Transmission Date: 20230722
  Serious: Yes (Other)
  Sender: FDA-Public Use
  Company Number: US-PFIZER INC-202300031091

PATIENT
  Age: 78 Year
  Sex: Male
  Weight: 105 kg

DRUGS (2)
  1. BUPIVACAINE HYDROCHLORIDE [Suspect]
     Active Substance: BUPIVACAINE HYDROCHLORIDE
     Indication: Spinal anaesthesia
     Dosage: 1.4 ML [1.4ML, INTRATHECALLY; 2ML AMPULE, ALL READY LIQUID]
     Route: 037
     Dates: start: 20230116
  2. MARCAINE [Suspect]
     Active Substance: BUPIVACAINE HYDROCHLORIDE
     Indication: Spinal anaesthesia
     Dosage: 1.4 ML, 1X/DAY (ONCE)
     Route: 037

REACTIONS (2)
  - Therapeutic product effect delayed [Unknown]
  - Therapeutic product effect decreased [Unknown]

NARRATIVE: CASE EVENT DATE: 20230116
